FAERS Safety Report 7428709-6 (Version None)
Quarter: 2011Q2

REPORT INFORMATION
  Report Type: 
  Country: None (occurrence: None)
  Receive Date: 20110413
  Receipt Date: 20110318
  Transmission Date: 20111010
  Serious: Yes (Hospitalization)
  Sender: FDA-Public Use
  Company Number: 2135225-2011-00026

PATIENT
  Age: 52 Year
  Sex: Female

DRUGS (2)
  1. LEVOTHYROXINE SODIUM [Concomitant]
  2. AETOXISCLEROL [Suspect]
     Indication: VARICOSE VEIN
     Dosage: LAUROMACROGOL 400, I.V.
     Route: 042
     Dates: start: 20101221, end: 20110119

REACTIONS (5)
  - TOXIC SKIN ERUPTION [None]
  - SKIN LESION [None]
  - PRURITUS [None]
  - RASH MACULO-PAPULAR [None]
  - PYREXIA [None]
